FAERS Safety Report 21658627 (Version 2)
Quarter: 2022Q4

REPORT INFORMATION
  Report Type: Spontaneous
  Country: US (occurrence: US)
  Receive Date: 20221129
  Receipt Date: 20221230
  Transmission Date: 20230112
  Serious: No
  Sender: FDA-Public Use
  Company Number: US-BRISTOL-MYERS SQUIBB COMPANY-2022-144962

PATIENT
  Age: 56 Year
  Sex: Male
  Weight: 76 kg

DRUGS (1)
  1. POMALYST [Suspect]
     Active Substance: POMALIDOMIDE
     Indication: Plasma cell myeloma
     Dosage: FREQUENCY: D1-21 Q28 DAYS ?ONGOING
     Route: 048
     Dates: start: 20221105

REACTIONS (2)
  - Laboratory test abnormal [Recovering/Resolving]
  - Product distribution issue [Unknown]
